FAERS Safety Report 8985190 (Version 1)
Quarter: 2012Q4

REPORT INFORMATION
  Report Type: 
  Country: US (occurrence: US)
  Receive Date: 20121226
  Receipt Date: 20121226
  Transmission Date: 20130627
  Serious: No
  Sender: FDA-Public Use
  Company Number: US-PFIZER INC-2012326389

PATIENT
  Age: 49 Year
  Sex: Male
  Weight: 76 kg

DRUGS (3)
  1. ADVIL [Suspect]
     Indication: INFLUENZA LIKE ILLNESS
     Dosage: 200 mg, two tablets, UNK
     Dates: start: 20121220
  2. ADVIL [Suspect]
     Indication: CHILLS
     Dosage: 600 mg (200 mg, three tablets), UNK
     Dates: start: 20121221
  3. GUAIFENESIN [Concomitant]
     Dosage: UNK
     Dates: start: 20121218

REACTIONS (1)
  - Rash generalised [Unknown]
